FAERS Safety Report 7263915-5 (Version None)
Quarter: 2011Q1

REPORT INFORMATION
  Report Type: 
  Country: None (occurrence: None)
  Receive Date: 20110130
  Receipt Date: 20101208
  Transmission Date: 20110831
  Serious: No
  Sender: FDA-Public Use
  Company Number: US-ABBOTT-10P-163-0690355-00

PATIENT
  Age: 50 Year
  Sex: Female

DRUGS (5)
  1. DIOVAN [Concomitant]
     Indication: HYPERTENSION
     Dosage: DAILY
  2. DOXEPIN HCL [Concomitant]
     Indication: PRURITUS
     Dosage: AT BEDTIME
  3. FEXOFENADINE HCL [Concomitant]
     Indication: SEASONAL ALLERGY
     Dosage: DAILY
  4. HUMIRA [Suspect]
     Indication: CROHN'S DISEASE
     Dates: start: 20081201, end: 20101001
  5. PAROXETINE HCL [Concomitant]
     Indication: ANXIETY
     Dosage: DAILY

REACTIONS (3)
  - HEPATIC ENZYME INCREASED [None]
  - ABDOMINAL DISTENSION [None]
  - FAECALOMA [None]
